FAERS Safety Report 11419518 (Version 1)
Quarter: 2015Q3

REPORT INFORMATION
  Report Type: Spontaneous
  Country: US (occurrence: None)
  Receive Date: 20150825
  Receipt Date: 20150825
  Transmission Date: 20151125
  Serious: Yes (Other)
  Sender: FDA-Public Use
  Company Number: None

PATIENT
  Age: 59 Year
  Sex: Male

DRUGS (1)
  1. DIVALPROEX ER [Suspect]
     Active Substance: DIVALPROEX SODIUM
     Indication: MOOD SWINGS
     Dosage: 3 PILLS  QD ORAL
     Route: 048
     Dates: start: 20150817, end: 20150824

REACTIONS (4)
  - Mucosal induration [None]
  - Mouth ulceration [None]
  - Oral discomfort [None]
  - Oral mucosal discolouration [None]

NARRATIVE: CASE EVENT DATE: 20150817
